FAERS Safety Report 6344188-4 (Version None)
Quarter: 2009Q3

REPORT INFORMATION
  Report Type: 
  Country: None (occurrence: None)
  Receive Date: 20090908
  Receipt Date: 20090827
  Transmission Date: 20100115
  Serious: Yes (Death, Hospitalization)
  Sender: FDA-Public Use
  Company Number: CH-PFIZER INC-2009260355

PATIENT
  Age: 81 Year

DRUGS (14)
  1. NORVASC [Suspect]
     Dosage: 10 MG, 1X/DAY
     Route: 048
     Dates: start: 20060707, end: 20090730
  2. ZESTRIL [Suspect]
     Dosage: 10 MG, 1X/DAY
     Route: 048
     Dates: start: 20070401, end: 20090730
  3. TORASEMIDE [Concomitant]
     Indication: HYPERTENSIVE HEART DISEASE
     Dosage: 10 MG, 1X/DAY
     Route: 048
     Dates: end: 20090730
  4. LASIX [Concomitant]
     Dosage: 40 MG, 1X/DAY
     Route: 040
     Dates: start: 20090730, end: 20090810
  5. NEXIUM [Concomitant]
     Indication: GASTRITIS
     Dosage: 40 MG, 2X/DAY
     Route: 048
     Dates: start: 20080101, end: 20090803
  6. NEXIUM [Concomitant]
     Dosage: 40 MG, 2X/DAY
     Route: 040
     Dates: start: 20090806, end: 20090810
  7. PARACETAMOL [Concomitant]
     Indication: PANCREATITIS ACUTE
     Dosage: 1 G, 3X/DAY
     Route: 040
     Dates: start: 20090807, end: 20090810
  8. ALDACTONE [Concomitant]
     Dosage: 25 MG, 1X/DAY
     Dates: end: 20090730
  9. SOLDACTONE [Concomitant]
     Indication: HYPERTENSIVE HEART DISEASE
     Dosage: 200 MG, 1X/DAY
     Route: 040
     Dates: start: 20090730, end: 20090811
  10. SINTROM [Concomitant]
     Indication: ATRIAL FIBRILLATION
     Dosage: 1 DF, 1X/DAY
     Route: 048
     Dates: end: 20090730
  11. SINTROM [Concomitant]
     Indication: ATRIAL FLUTTER
  12. NOVOMIX [Concomitant]
     Dosage: 30 IU, 1X/DAY
     Dates: end: 20090730
  13. NOVORAPID [Concomitant]
     Dosage: 4 IU, 4X/DAY
     Route: 058
     Dates: start: 20090730, end: 20090811
  14. VITARUBIN [Concomitant]
     Dosage: 1000 UG, MONTHLY
     Dates: end: 20090730

REACTIONS (16)
  - ANAEMIA [None]
  - ATRIAL FIBRILLATION [None]
  - ATRIAL FLUTTER [None]
  - BRONCHOPNEUMONIA [None]
  - CARDIAC FAILURE CONGESTIVE [None]
  - CONDITION AGGRAVATED [None]
  - GASTRITIS [None]
  - HAEMATEMESIS [None]
  - HYPERTENSIVE HEART DISEASE [None]
  - HYPERTENSIVE NEPHROPATHY [None]
  - HYPOALBUMINAEMIA [None]
  - PANCREATITIS ACUTE [None]
  - PANCREATITIS NECROTISING [None]
  - RENAL FAILURE CHRONIC [None]
  - SUDDEN DEATH [None]
  - VIRAL INFECTION [None]
